FAERS Safety Report 16794759 (Version 1)
Quarter: 2019Q4

REPORT INFORMATION
  Report Type: Spontaneous
  Country: US (occurrence: US)
  Receive Date: 20190910
  Receipt Date: 20190910
  Transmission Date: 20200122
  Serious: Yes (Death, Life-Threatening, Hospitalization, Disabling)
  Sender: FDA-Public Use
  Company Number: None

PATIENT
  Age: 56 Year
  Sex: Male
  Weight: 103.5 kg

DRUGS (6)
  1. AMLODIPINE [Concomitant]
     Active Substance: AMLODIPINE BESYLATE
  2. IMBRUVICA [Suspect]
     Active Substance: IBRUTINIB
     Indication: CHRONIC LYMPHOCYTIC LEUKAEMIA
     Dosage: ?          QUANTITY:1 TABLET(S);?
     Route: 048
  3. NOVOLIN [Concomitant]
     Active Substance: INSULIN HUMAN
  4. IBUPROFEN. [Concomitant]
     Active Substance: IBUPROFEN
  5. CARVEDILOL. [Concomitant]
     Active Substance: CARVEDILOL
  6. IMBRUVICA [Concomitant]
     Active Substance: IBRUTINIB

REACTIONS (12)
  - Vomiting [None]
  - Abdominal pain [None]
  - Abdominal distension [None]
  - Chest pain [None]
  - Hypotension [None]
  - Kidney infection [None]
  - Confusional state [None]
  - Atrial fibrillation [None]
  - Bone contusion [None]
  - Diarrhoea [None]
  - Thirst [None]
  - Sepsis [None]

NARRATIVE: CASE EVENT DATE: 20190824
